FAERS Safety Report 23193719 (Version 1)
Quarter: 2023Q4

REPORT INFORMATION
  Report Type: Spontaneous
  Country: US (occurrence: US)
  Receive Date: 20231116
  Receipt Date: 20231116
  Transmission Date: 20240110
  Serious: Yes (Life-Threatening, Hospitalization)
  Sender: FDA-Public Use
  Company Number: US-PRINSTON PHARMACEUTICAL INC.-2023PRN00573

PATIENT
  Age: 43 Year
  Sex: Male

DRUGS (1)
  1. METFORMIN HYDROCHLORIDE [Suspect]
     Active Substance: METFORMIN HYDROCHLORIDE
     Indication: Suicide attempt
     Dosage: 480000 MG
     Route: 048

REACTIONS (3)
  - Lactic acidosis [Recovered/Resolved]
  - Suicide attempt [Recovered/Resolved]
  - Renal tubular necrosis [Recovered/Resolved]
